FAERS Safety Report 22115303 (Version 1)
Quarter: 2023Q1

REPORT INFORMATION
  Report Type: Spontaneous
  Country: US (occurrence: US)
  Receive Date: 20230320
  Receipt Date: 20230320
  Transmission Date: 20230417
  Serious: No
  Sender: FDA-Public Use
  Company Number: US-SA-SAC20230317000946

PATIENT
  Sex: Male

DRUGS (2)
  1. ELOCTATE [Suspect]
     Active Substance: EFMOROCTOCOG ALFA
     Indication: Factor VIII deficiency
     Dosage: 245 U, PRN; 1925 UNITS (1733-2117) ONCE AS NEEDED; 1588 U, PRN
     Route: 042
     Dates: start: 202208
  2. ELOCTATE [Suspect]
     Active Substance: EFMOROCTOCOG ALFA
     Indication: Factor VIII deficiency
     Dosage: 245 U, PRN; 1925 UNITS (1733-2117) ONCE AS NEEDED; 1588 U, PRN
     Route: 042
     Dates: start: 202208

REACTIONS (2)
  - Head injury [Unknown]
  - Ear haemorrhage [Unknown]
